FAERS Safety Report 10637746 (Version 1)
Quarter: 2014Q4

REPORT INFORMATION
  Report Type: Spontaneous
  Country: US (occurrence: US)
  Receive Date: 20141208
  Receipt Date: 20141208
  Transmission Date: 20150529
  Serious: No
  Sender: FDA-Public Use
  Company Number: US-TEVA-526821USA

PATIENT

DRUGS (3)
  1. NUVIGIL [Suspect]
     Active Substance: ARMODAFINIL
     Indication: FATIGUE
  2. LYRICA [Concomitant]
     Active Substance: PREGABALIN
  3. NUVIGIL [Suspect]
     Active Substance: ARMODAFINIL
     Indication: FIBROMYALGIA

REACTIONS (1)
  - Therapeutic response unexpected [Unknown]
